FAERS Safety Report 19238379 (Version 2)
Quarter: 2022Q1

REPORT INFORMATION
  Report Type: Spontaneous
  Country: US (occurrence: US)
  Receive Date: 20210510
  Receipt Date: 20220205
  Transmission Date: 20220424
  Serious: No
  Sender: FDA-Public Use
  Company Number: US-JNJFOC-20210458947

PATIENT
  Age: 91 Year
  Sex: Female

DRUGS (1)
  1. WOMENS ROGAINE UNSCENTED [Suspect]
     Active Substance: MINOXIDIL
     Indication: Alopecia
     Dosage: HALF A CAP FULL
     Route: 061
     Dates: start: 20200801

REACTIONS (1)
  - Application site pruritus [Recovering/Resolving]

NARRATIVE: CASE EVENT DATE: 20210408
